FAERS Safety Report 8957569 (Version 1)
Quarter: 2012Q4

REPORT INFORMATION
  Report Type: 
  Country: US (occurrence: US)
  Receive Date: 20121211
  Receipt Date: 20121211
  Transmission Date: 20130627
  Serious: Yes (Hospitalization)
  Sender: FDA-Public Use
  Company Number: US-ROCHE-1160750

PATIENT
  Sex: Male

DRUGS (5)
  1. PEGASYS [Suspect]
     Indication: HEPATITIS C
     Route: 065
     Dates: start: 20110318
  2. PEGASYS [Suspect]
     Route: 065
     Dates: start: 20121106
  3. COPEGUS [Suspect]
     Indication: HEPATITIS C
     Route: 065
     Dates: start: 20110318
  4. COPEGUS [Suspect]
     Route: 065
     Dates: start: 20121106
  5. TELAPREVIR [Suspect]
     Indication: HEPATITIS C
     Route: 065
     Dates: start: 20121106

REACTIONS (5)
  - Blood pressure increased [Unknown]
  - Candidiasis [Unknown]
  - Syncope [Unknown]
  - Abdominal pain [Unknown]
  - Immune system disorder [Unknown]
